FAERS Safety Report 4783556-9 (Version None)
Quarter: 2005Q3

REPORT INFORMATION
  Report Type: 
  Country: None (occurrence: None)
  Receive Date: 20050929
  Receipt Date: 20050921
  Transmission Date: 20060218
  Serious: Yes (Death)
  Sender: FDA-Public Use
  Company Number: US-JNJFOC-20050905578

PATIENT
  Age: 17 Year
  Sex: Male

DRUGS (1)
  1. ULTRAM [Suspect]
     Indication: DRUG USE FOR UNKNOWN INDICATION
     Dosage: ^HE HAD TAKEN FIVE ULTRAMS^

REACTIONS (4)
  - DRUG SCREEN POSITIVE [None]
  - DRUG TOXICITY [None]
  - MURDER [None]
  - ROAD TRAFFIC ACCIDENT [None]
